FAERS Safety Report 8302364-5 (Version None)
Quarter: 2012Q2

REPORT INFORMATION
  Report Type: 
  Country: None (occurrence: None)
  Receive Date: 20120418
  Receipt Date: 20120418
  Transmission Date: 20120825
  Serious: Yes (Hospitalization)
  Sender: FDA-Public Use
  Company Number: None

PATIENT
  Age: 33 Year
  Sex: Male
  Weight: 104.5 kg

DRUGS (3)
  1. LORAZEPAM [Suspect]
     Indication: ANXIETY
     Dosage: 0.5 MG PRN PO
     Route: 048
     Dates: start: 20110916
  2. LITHIUM CARBONATE [Suspect]
     Indication: BIPOLAR DISORDER
     Dosage: 600 MG BID PO
     Route: 048
     Dates: start: 20090629
  3. LITHIUM CARBONATE [Suspect]
     Indication: MANIA
     Dosage: 600 MG BID PO
     Route: 048
     Dates: start: 20090629

REACTIONS (3)
  - DIZZINESS [None]
  - SEDATION [None]
  - LETHARGY [None]
